FAERS Safety Report 14186597 (Version 3)
Quarter: 2017Q4

REPORT INFORMATION
  Report Type: Spontaneous
  Country: JP (occurrence: JP)
  Receive Date: 20171114
  Receipt Date: 20171204
  Transmission Date: 20180321
  Serious: Yes (Hospitalization, Other)
  Sender: FDA-Public Use
  Company Number: JP-MYLANLABS-2017M1071196

PATIENT
  Age: 21 Year
  Sex: Male

DRUGS (1)
  1. AMITRIPTYLINE [Suspect]
     Active Substance: AMITRIPTYLINE
     Indication: DEPRESSION
     Route: 048

REACTIONS (18)
  - Toxicity to various agents [Unknown]
  - Coma [Not Recovered/Not Resolved]
  - Blood pH decreased [Unknown]
  - Blood pressure decreased [Unknown]
  - Blood glucose increased [Unknown]
  - Blood bicarbonate decreased [Unknown]
  - Seizure [Recovering/Resolving]
  - Pulmonary interstitial emphysema syndrome [Unknown]
  - Brain injury [Not Recovered/Not Resolved]
  - Abdominal compartment syndrome [Recovering/Resolving]
  - Overdose [Unknown]
  - Blood lactic acid increased [Unknown]
  - Intestinal obstruction [Unknown]
  - Anion gap increased [Unknown]
  - Ventricular tachycardia [Unknown]
  - Ventricular fibrillation [Recovered/Resolved]
  - Brain oedema [Not Recovered/Not Resolved]
  - Intestinal strangulation [Unknown]
